FAERS Safety Report 4436948-1 (Version None)
Quarter: 2004Q3

REPORT INFORMATION
  Report Type: 
  Country: None (occurrence: None)
  Receive Date: 20040827
  Receipt Date: 20040817
  Transmission Date: 20050211
  Serious: Yes (Hospitalization)
  Sender: FDA-Public Use
  Company Number: 163-20785-04030772

PATIENT
  Age: 75 Year
  Sex: Male

DRUGS (7)
  1. THALOMID [Suspect]
     Indication: MULTIPLE MYELOMA
     Dosage: 50 MG, DAILY, ORAL
     Route: 048
     Dates: start: 20031027, end: 20031224
  2. LASIX [Concomitant]
  3. ALDACTONE [Concomitant]
  4. AVANDIA [Concomitant]
  5. COREG (CARVEDILOL) (UNKNOWN) [Concomitant]
  6. AMARYL (GLIMEPRIDE) (UNKNOWN) [Concomitant]
  7. LANTUS (INSULIN GLARGINE) (UNKNOWN) [Concomitant]

REACTIONS (4)
  - HYPOXIA [None]
  - PULMONARY FUNCTION TEST DECREASED [None]
  - THROMBOPHLEBITIS SUPERFICIAL [None]
  - VENTILATION/PERFUSION SCAN ABNORMAL [None]
